FAERS Safety Report 21763158 (Version 1)
Quarter: 2022Q4

REPORT INFORMATION
  Report Type: Spontaneous
  Country: FR (occurrence: FR)
  Receive Date: 20221221
  Receipt Date: 20221221
  Transmission Date: 20230112
  Serious: Yes (Other)
  Sender: FDA-Public Use
  Company Number: FR-ELI_LILLY_AND_COMPANY-FR202212010379

PATIENT
  Sex: Male

DRUGS (8)
  1. GEMCITABINE HYDROCHLORIDE [Interacting]
     Active Substance: GEMCITABINE HYDROCHLORIDE
     Indication: Pancreatic carcinoma metastatic
     Dosage: 1800 MG, UNKNOWN
     Route: 065
  2. PACLITAXEL [Interacting]
     Active Substance: PACLITAXEL
     Indication: Pancreatic carcinoma metastatic
     Dosage: 230 MG
     Route: 065
  3. WARFARIN [Interacting]
     Active Substance: WARFARIN
     Indication: Arrhythmia supraventricular
     Dosage: 5 MG, DAILY
     Route: 065
  4. LYSINE ACETYLSALICYLATE [Interacting]
     Active Substance: ASPIRIN DL-LYSINE
     Indication: Myocardial ischaemia
     Dosage: 75 MG, DAILY
     Route: 065
  5. VISCUM ALBUM FRUITING TOP [Interacting]
     Active Substance: VISCUM ALBUM FRUITING TOP
     Indication: Pancreatic carcinoma metastatic
     Dosage: 10 MG, UNKNOWN
     Route: 058
  6. AMIODARONE [Concomitant]
     Active Substance: AMIODARONE
     Dosage: 200 MG, DAILY
  7. BISOPROLOL [Concomitant]
     Active Substance: BISOPROLOL
     Dosage: 5 MG, DAILY
  8. HEPARIN [Concomitant]
     Active Substance: HEPARIN SODIUM
     Indication: Anticoagulant therapy
     Dosage: UNK, UNKNOWN

REACTIONS (7)
  - Vitamin K decreased [Unknown]
  - Gastrointestinal haemorrhage [Unknown]
  - Neuropathy peripheral [Unknown]
  - Anaemia [Unknown]
  - Drug interaction [Unknown]
  - International normalised ratio increased [Recovered/Resolved]
  - Thrombocytopenia [Unknown]
